FAERS Safety Report 5900760-4 (Version None)
Quarter: 2008Q3

REPORT INFORMATION
  Report Type: 
  Country: None (occurrence: None)
  Receive Date: 20080929
  Receipt Date: 20080916
  Transmission Date: 20090109
  Serious: Yes (Hospitalization)
  Sender: FDA-Public Use
  Company Number: SE-MERCK-0710SWE00008

PATIENT
  Age: 50 Year
  Sex: Male

DRUGS (14)
  1. ZETIA [Suspect]
     Route: 048
     Dates: start: 20060101
  2. ZETIA [Suspect]
     Route: 048
  3. BISOPROLOL [Concomitant]
     Route: 048
  4. BISOPROLOL [Concomitant]
     Route: 048
     Dates: start: 20070101
  5. INSULIN [Concomitant]
     Route: 051
  6. ENALAPRIL MALEATE [Concomitant]
     Route: 048
  7. ENALAPRIL MALEATE [Concomitant]
     Route: 048
  8. ISOSORBIDE MONONITRATE [Concomitant]
     Route: 048
  9. ASPIRIN [Concomitant]
     Route: 048
  10. INSULIN LISPRO [Concomitant]
     Route: 051
  11. CANDESARTAN CILEXETIL [Suspect]
     Route: 048
     Dates: start: 20070401
  12. CANDESARTAN CILEXETIL [Suspect]
     Route: 048
     Dates: end: 20070806
  13. ROSUVASTATIN CALCIUM [Suspect]
     Route: 048
     Dates: start: 20060101
  14. ROSUVASTATIN CALCIUM [Suspect]
     Route: 048

REACTIONS (2)
  - BLOOD CREATININE INCREASED [None]
  - RHABDOMYOLYSIS [None]
